FAERS Safety Report 4984790-5 (Version None)
Quarter: 2006Q2

REPORT INFORMATION
  Report Type: 
  Country: None (occurrence: None)
  Receive Date: 20060425
  Receipt Date: 20060425
  Transmission Date: 20061013
  Serious: No
  Sender: FDA-Public Use
  Company Number: None

PATIENT
  Age: 4 Year
  Sex: Female
  Weight: 18.1439 kg

DRUGS (2)
  1. GAMUNEX [Suspect]
     Indication: HYPOGAMMAGLOBULINAEMIA
     Dosage: 1 GM WEEKLY SQ
     Route: 058
     Dates: start: 20060408, end: 20060408
  2. GAMUNEX [Suspect]
     Indication: HYPOGAMMAGLOBULINAEMIA
     Dosage: 2.5 GM WEEKLY SQ
     Route: 058
     Dates: start: 20060408, end: 20060408

REACTIONS (1)
  - PHARMACEUTICAL PRODUCT COMPLAINT [None]
